FAERS Safety Report 7783307-X (Version None)
Quarter: 2011Q3

REPORT INFORMATION
  Report Type: 
  Country: None (occurrence: None)
  Receive Date: 20110928
  Receipt Date: 20110919
  Transmission Date: 20111222
  Serious: Yes (Hospitalization, Other)
  Sender: FDA-Public Use
  Company Number: US-BAYER-201028305NA

PATIENT
  Age: 24 Year
  Sex: Female
  Weight: 83.9 kg

DRUGS (3)
  1. YASMIN [Suspect]
     Route: 048
  2. YAZ [Suspect]
     Dosage: UNK UNK, UNK
     Route: 048
     Dates: start: 20030101, end: 20090101
  3. MULTIVITAMIN PREPARATION + MINERAL SUPPLEMENT [Concomitant]
     Dosage: UNK UNK, QD
     Route: 048

REACTIONS (5)
  - ABDOMINAL PAIN [None]
  - URINARY TRACT INFECTION [None]
  - MESENTERIC VEIN THROMBOSIS [None]
  - KIDNEY INFECTION [None]
  - THROMBOSIS [None]
